FAERS Safety Report 6825936-3 (Version None)
Quarter: 2010Q3

REPORT INFORMATION
  Report Type: 
  Country: None (occurrence: None)
  Receive Date: 20100709
  Receipt Date: 20100701
  Transmission Date: 20110219
  Serious: Yes (Hospitalization, Other)
  Sender: FDA-Public Use
  Company Number: US-ASTRAZENECA-2007UW02356

PATIENT
  Age: 18635 Day
  Sex: Male
  Weight: 106.6 kg

DRUGS (24)
  1. SEROQUEL [Suspect]
     Indication: POST-TRAUMATIC STRESS DISORDER
     Route: 048
     Dates: start: 20030317, end: 20040903
  2. SEROQUEL [Suspect]
     Indication: HALLUCINATION
     Route: 048
     Dates: start: 20030317, end: 20040903
  3. SEROQUEL [Suspect]
     Indication: SLEEP DISORDER
     Route: 048
     Dates: start: 20030317, end: 20040903
  4. SEROQUEL [Suspect]
     Indication: DEPRESSION
     Route: 048
     Dates: start: 20030317, end: 20040903
  5. SEROQUEL [Suspect]
     Indication: NIGHTMARE
     Route: 048
     Dates: start: 20030317, end: 20040903
  6. SEROQUEL [Suspect]
     Indication: FLASHBACK
     Route: 048
     Dates: start: 20030317, end: 20040903
  7. SEROQUEL [Suspect]
     Dosage: 100-300 MG
     Route: 048
     Dates: start: 20030317
  8. SEROQUEL [Suspect]
     Dosage: 100-300 MG
     Route: 048
     Dates: start: 20030317
  9. SEROQUEL [Suspect]
     Dosage: 100-300 MG
     Route: 048
     Dates: start: 20030317
  10. SEROQUEL [Suspect]
     Dosage: 100-300 MG
     Route: 048
     Dates: start: 20030317
  11. SEROQUEL [Suspect]
     Dosage: 100-300 MG
     Route: 048
     Dates: start: 20030317
  12. SEROQUEL [Suspect]
     Dosage: 100-300 MG
     Route: 048
     Dates: start: 20030317
  13. SEROQUEL [Suspect]
     Route: 048
     Dates: start: 20040101, end: 20060301
  14. SEROQUEL [Suspect]
     Route: 048
     Dates: start: 20040101, end: 20060301
  15. SEROQUEL [Suspect]
     Route: 048
     Dates: start: 20040101, end: 20060301
  16. SEROQUEL [Suspect]
     Route: 048
     Dates: start: 20040101, end: 20060301
  17. SEROQUEL [Suspect]
     Route: 048
     Dates: start: 20040101, end: 20060301
  18. SEROQUEL [Suspect]
     Route: 048
     Dates: start: 20040101, end: 20060301
  19. SEROQUEL [Suspect]
     Route: 048
     Dates: start: 20060327, end: 20060629
  20. SEROQUEL [Suspect]
     Route: 048
     Dates: start: 20060327, end: 20060629
  21. SEROQUEL [Suspect]
     Route: 048
     Dates: start: 20060327, end: 20060629
  22. SEROQUEL [Suspect]
     Route: 048
     Dates: start: 20060327, end: 20060629
  23. SEROQUEL [Suspect]
     Route: 048
     Dates: start: 20060327, end: 20060629
  24. SEROQUEL [Suspect]
     Route: 048
     Dates: start: 20060327, end: 20060629

REACTIONS (26)
  - ANXIETY [None]
  - BACK PAIN [None]
  - BLOOD CHOLESTEROL INCREASED [None]
  - CARDIAC DISORDER [None]
  - CHEST PAIN [None]
  - CORONARY ARTERY DISEASE [None]
  - DELIRIUM [None]
  - DRUG ABUSE [None]
  - HYPERLIPIDAEMIA [None]
  - HYPOAESTHESIA [None]
  - JOINT INJURY [None]
  - KNEE DEFORMITY [None]
  - MUSCLE SPASMS [None]
  - MUSCULAR WEAKNESS [None]
  - MYOCARDIAL INFARCTION [None]
  - OSTEOARTHRITIS [None]
  - OVERDOSE [None]
  - PAIN [None]
  - PAIN IN EXTREMITY [None]
  - POOR QUALITY SLEEP [None]
  - SKIN LACERATION [None]
  - TOBACCO ABUSE [None]
  - TYPE 1 DIABETES MELLITUS [None]
  - TYPE 2 DIABETES MELLITUS [None]
  - VISUAL ACUITY REDUCED [None]
  - WEIGHT INCREASED [None]
